FAERS Safety Report 8941598 (Version 1)
Quarter: 2012Q4

REPORT INFORMATION
  Report Type: 
  Country: CA (occurrence: CA)
  Receive Date: 20121203
  Receipt Date: 20121203
  Transmission Date: 20130627
  Serious: Yes (Other)
  Sender: FDA-Public Use
  Company Number: CA-JNJFOC-20121101135

PATIENT
  Sex: Male

DRUGS (5)
  1. XARELTO [Suspect]
     Indication: ATRIAL FIBRILLATION
     Route: 048
     Dates: start: 20120703
  2. XARELTO [Suspect]
     Indication: CEREBROVASCULAR ACCIDENT PROPHYLAXIS
     Route: 048
     Dates: start: 20120703
  3. COVERSYL [Concomitant]
     Route: 065
  4. HCT [Concomitant]
     Route: 065
  5. CYMBALTA [Concomitant]
     Route: 065

REACTIONS (2)
  - Haemorrhage [Recovering/Resolving]
  - Carpal tunnel syndrome [Unknown]
